FAERS Safety Report 5947280-9 (Version None)
Quarter: 2008Q4

REPORT INFORMATION
  Report Type: 
  Country: None (occurrence: None)
  Receive Date: 20081110
  Receipt Date: 20081104
  Transmission Date: 20090506
  Serious: No
  Sender: FDA-Public Use
  Company Number: US-B.I. PHARMACEUTICALS,INC./RIDGEFIELD-2008-BP-16786BP

PATIENT
  Age: 75 Year
  Sex: Male

DRUGS (6)
  1. SPIRIVA [Suspect]
     Indication: DYSPNOEA
     Dosage: 18MCG
     Route: 055
  2. LISINOPRIL AND HYDROCHLOROTHIAZIDE [Concomitant]
  3. ISOSORBIDE [Concomitant]
     Dosage: 30MG
  4. GLYBURIDE [Concomitant]
     Indication: DIABETES MELLITUS
  5. CARVEDILOL [Concomitant]
     Dosage: 25MG
  6. TYLENOL [Concomitant]

REACTIONS (1)
  - FATIGUE [None]
